FAERS Safety Report 7522493-3 (Version None)
Quarter: 2011Q2

REPORT INFORMATION
  Report Type: 
  Country: None (occurrence: None)
  Receive Date: 20110603
  Receipt Date: 20110524
  Transmission Date: 20111010
  Serious: Yes (Hospitalization)
  Sender: FDA-Public Use
  Company Number: ES-ROCHE-779679

PATIENT
  Sex: Male
  Weight: 81 kg

DRUGS (5)
  1. EPROSARTAN [Concomitant]
  2. CAPECITABINE [Suspect]
     Indication: COLORECTAL CANCER
     Dosage: LAST DOSE PRIOR TO SAE 8 APRIL 2011. FREQUENCY :14 DAYS EVERY 21 DAYS.
     Route: 048
     Dates: start: 20101229, end: 20110408
  3. BEVACIZUMAB [Suspect]
     Indication: COLORECTAL CANCER
     Dosage: LAST DOSE PRIOR TO SAE 28 MARCH 2011
     Route: 042
     Dates: start: 20101229, end: 20110328
  4. IRINOTECAN HYDROCHLORIDE [Suspect]
     Indication: COLORECTAL CANCER
     Dosage: LAST DOSE PRIOR TO SAE 28 MARCH 2011
     Route: 042
     Dates: start: 20101229, end: 20110328
  5. OMEPRAZOLE [Concomitant]

REACTIONS (1)
  - VERTIGO [None]
